FAERS Safety Report 9096288 (Version 2)
Quarter: 2013Q1

REPORT INFORMATION
  Report Type: Report from Study
  Country: JP (occurrence: JP)
  Receive Date: 20130207
  Receipt Date: 20130329
  Transmission Date: 20140127
  Serious: Yes (Death)
  Sender: FDA-Public Use
  Company Number: JP-PFIZER INC-2013045449

PATIENT
  Age: 8 Decade
  Sex: Male
  Weight: 48 kg

DRUGS (2)
  1. TEMSIROLIMUS [Suspect]
     Indication: METASTATIC RENAL CELL CARCINOMA
     Dosage: 25 MG, WEEKLY
     Route: 042
     Dates: start: 20111220, end: 20120810
  2. POLARAMIN [Concomitant]
     Indication: PROPHYLAXIS
     Dosage: 5 MG, WEEKLY (ADMINISTERED ON THE DAY TEMSIROLIMUS WAS GIVEN)
     Route: 042
     Dates: start: 20111220, end: 20120810

REACTIONS (2)
  - Disease progression [Fatal]
  - Renal cell carcinoma [Fatal]
